FAERS Safety Report 18305727 (Version 1)
Quarter: 2020Q3

REPORT INFORMATION
  Report Type: Spontaneous
  Country: GB (occurrence: GB)
  Receive Date: 20200923
  Receipt Date: 20200923
  Transmission Date: 20201103
  Serious: Yes (Other)
  Sender: FDA-Public Use
  Company Number: GB-ASCEND THERAPEUTICS US, LLC-2091088

PATIENT
  Age: 56 Year
  Sex: Female
  Weight: 62 kg

DRUGS (3)
  1. ESTROGEL [Suspect]
     Active Substance: ESTRADIOL
  2. OESTRODOSE (ESTRADIOL) [Suspect]
     Active Substance: ESTRADIOL
     Route: 062
     Dates: start: 20190730, end: 20200330
  3. ESTROGEL [Suspect]
     Active Substance: ESTRADIOL
     Indication: HORMONE REPLACEMENT THERAPY
     Route: 062
     Dates: start: 20190730, end: 20200330

REACTIONS (9)
  - Hot flush [Recovered/Resolved]
  - Menopausal symptoms [Recovered/Resolved]
  - Product substitution issue [Unknown]
  - Urinary tract infection [Recovered/Resolved]
  - Anxiety [Recovered/Resolved]
  - Insomnia [Recovered/Resolved]
  - Palpitations [Recovered/Resolved]
  - Drug ineffective [Recovered/Resolved]
  - Product quality issue [Unknown]
